FAERS Safety Report 10008463 (Version 5)
Quarter: 2014Q2

REPORT INFORMATION
  Report Type: Spontaneous
  Country: US (occurrence: US)
  Receive Date: 20140313
  Receipt Date: 20140630
  Transmission Date: 20141212
  Serious: Yes (Other)
  Sender: FDA-Public Use
  Company Number: US-PFIZER INC-2014072391

PATIENT
  Age: 71 Year
  Sex: Female

DRUGS (1)
  1. PREMARIN [Suspect]
     Dosage: UNK

REACTIONS (6)
  - Dementia Alzheimer^s type [Unknown]
  - Osteoporosis [Unknown]
  - Osteopenia [Unknown]
  - Hearing impaired [Unknown]
  - Alopecia [Unknown]
  - Skin wrinkling [Unknown]
